FAERS Safety Report 20210157 (Version 1)
Quarter: 2021Q4

REPORT INFORMATION
  Report Type: Spontaneous
  Country: CA (occurrence: None)
  Receive Date: 20211221
  Receipt Date: 20211221
  Transmission Date: 20220303
  Serious: Yes (Other)
  Sender: FDA-Public Use
  Company Number: CA-ROCHE-2977211

PATIENT
  Age: 58 Year
  Sex: Male

DRUGS (14)
  1. ACTEMRA [Suspect]
     Active Substance: TOCILIZUMAB
     Indication: Rheumatoid arthritis
     Route: 058
  2. DEPO-MEDROL [Suspect]
     Active Substance: METHYLPREDNISOLONE ACETATE
     Indication: Product used for unknown indication
     Route: 058
  3. FOLIC ACID [Suspect]
     Active Substance: FOLIC ACID
     Indication: Product used for unknown indication
     Route: 065
  4. LYRICA [Suspect]
     Active Substance: PREGABALIN
     Indication: Product used for unknown indication
     Route: 065
  5. LYRICA [Suspect]
     Active Substance: PREGABALIN
     Route: 065
  6. LYRICA [Suspect]
     Active Substance: PREGABALIN
     Route: 065
  7. METHOTREXATE [Concomitant]
     Active Substance: METHOTREXATE
  8. NORTRIPTYLINE [Concomitant]
     Active Substance: NORTRIPTYLINE
  9. OMEPRAZOLE [Concomitant]
     Active Substance: OMEPRAZOLE
  10. PREDNISONE [Concomitant]
     Active Substance: PREDNISONE
  11. SENOKOT [Concomitant]
     Active Substance: SENNOSIDES
  12. VITAMIN D3 [Concomitant]
     Active Substance: CHOLECALCIFEROL
  13. FLAXSEED [Concomitant]
     Active Substance: FLAX SEED
  14. IBUPROFEN [Concomitant]
     Active Substance: IBUPROFEN

REACTIONS (18)
  - Alanine aminotransferase increased [Unknown]
  - Arthralgia [Unknown]
  - Blood pressure increased [Unknown]
  - Constipation [Unknown]
  - Drug ineffective [Unknown]
  - Dyspepsia [Unknown]
  - Foot deformity [Unknown]
  - Gastrointestinal disorder [Unknown]
  - Hypoaesthesia [Unknown]
  - Intentional product use issue [Unknown]
  - Joint range of motion decreased [Unknown]
  - Joint swelling [Unknown]
  - Off label use [Unknown]
  - Paraesthesia [Unknown]
  - Peripheral swelling [Unknown]
  - Rectal haemorrhage [Unknown]
  - Synovial disorder [Unknown]
  - Therapeutic response shortened [Unknown]
